FAERS Safety Report 9170386 (Version 3)
Quarter: 2014Q1

REPORT INFORMATION
  Report Type: Report from Study
  Country: AU (occurrence: AU)
  Receive Date: 20130319
  Receipt Date: 20140121
  Transmission Date: 20141002
  Serious: Yes (Hospitalization, Other)
  Sender: FDA-Public Use
  Company Number: PHHY2013AU026480

PATIENT
  Sex: Male
  Weight: 90 kg

DRUGS (5)
  1. CLOZARIL [Suspect]
     Indication: SCHIZOPHRENIA
     Dosage: 625 MG, DAILY
     Route: 048
     Dates: start: 200604
  2. CLOZARIL [Suspect]
     Dosage: 475 MG, DAILY
     Route: 048
     Dates: start: 20060410
  3. RISPERIDONE [Concomitant]
     Indication: PSYCHOTIC DISORDER
     Dosage: 1 MG, MANE
     Route: 048
     Dates: start: 200604
  4. MIRTAZAPINE [Concomitant]
     Indication: DEPRESSION
     Dosage: 15 MG, NOCTE
     Route: 048
     Dates: start: 200604
  5. ATORVASTATIN [Concomitant]
     Indication: HYPERCHOLESTEROLAEMIA
     Dosage: 40 MG, NOCTE
     Route: 048

REACTIONS (4)
  - Non-Hodgkin^s lymphoma [Recovered/Resolved]
  - Fall [Unknown]
  - Sensory loss [Unknown]
  - Hypoaesthesia [Unknown]
